FAERS Safety Report 9449237 (Version 2)
Quarter: 2013Q3

REPORT INFORMATION
  Report Type: Spontaneous
  Country: US (occurrence: US)
  Receive Date: 20130808
  Receipt Date: 20130904
  Transmission Date: 20140515
  Serious: Yes (Death)
  Sender: FDA-Public Use
  Company Number: US-GLAXOSMITHKLINE-A1036144A

PATIENT
  Age: 60 Year
  Sex: Female

DRUGS (14)
  1. REQUIP XL [Suspect]
     Indication: RESTLESS LEGS SYNDROME
     Dosage: 2MG PER DAY
     Route: 048
     Dates: start: 20130411
  2. CYMBALTA [Concomitant]
  3. DULERA [Concomitant]
  4. GABAPENTIN [Concomitant]
  5. GLYBURIDE [Concomitant]
  6. HUMULIN [Concomitant]
  7. HYDROCODONE [Concomitant]
  8. HYDROXINE [Concomitant]
  9. LEVEMIR [Concomitant]
  10. LYRICA [Concomitant]
  11. METFORMIN [Concomitant]
  12. PRO-AIR [Concomitant]
  13. LISINOPRIL [Concomitant]
  14. SINGULAIR [Concomitant]

REACTIONS (2)
  - Myocardial infarction [Fatal]
  - Treatment noncompliance [Unknown]
